FAERS Safety Report 6474518-4 (Version None)
Quarter: 2009Q4

REPORT INFORMATION
  Report Type: 
  Country: None (occurrence: None)
  Receive Date: 20091204
  Receipt Date: 20081229
  Transmission Date: 20100525
  Serious: No
  Sender: FDA-Public Use
  Company Number: US-AMGEN-KDL326099

PATIENT
  Sex: Female

DRUGS (2)
  1. ENBREL [Suspect]
     Indication: PSORIATIC ARTHROPATHY
     Route: 058
  2. ENBREL [Suspect]
     Indication: PSORIASIS

REACTIONS (10)
  - ABDOMINAL PAIN [None]
  - BRONCHITIS [None]
  - EAR PAIN [None]
  - HAEMATOCHEZIA [None]
  - HEADACHE [None]
  - INJECTION SITE PAIN [None]
  - LYMPH NODE PAIN [None]
  - LYMPHADENOPATHY [None]
  - MENTAL IMPAIRMENT [None]
  - RESPIRATORY TRACT INFECTION [None]
